FAERS Safety Report 20565343 (Version 2)
Quarter: 2022Q2

REPORT INFORMATION
  Report Type: Spontaneous
  Country: DE (occurrence: DE)
  Receive Date: 20220308
  Receipt Date: 20220429
  Transmission Date: 20220721
  Serious: Yes (Hospitalization)
  Sender: FDA-Public Use
  Company Number: DE-Merck Healthcare KGaA-9302610

PATIENT
  Sex: Female

DRUGS (3)
  1. DEXAMETHASONE [Suspect]
     Active Substance: DEXAMETHASONE
     Indication: Maternal therapy to enhance foetal lung maturity
     Route: 064
  2. LEVOTHYROXINE SODIUM [Suspect]
     Active Substance: LEVOTHYROXINE SODIUM
     Indication: Hypothyroidism
     Route: 064
  3. NOVORAPID [Concomitant]
     Active Substance: INSULIN ASPART
     Indication: Type 1 diabetes mellitus
     Dosage: VIA INSULIN PUMP
     Route: 064

REACTIONS (7)
  - Respiratory disorder neonatal [Unknown]
  - Premature baby [Recovered/Resolved]
  - Jaundice neonatal [Recovered/Resolved]
  - Diabetic foetopathy [Unknown]
  - Hypoglycaemia neonatal [Unknown]
  - Foetal exposure during pregnancy [Recovered/Resolved]
  - Off label use [Unknown]
